FAERS Safety Report 8788881 (Version 1)
Quarter: 2012Q4

REPORT INFORMATION
  Report Type: 
  Country: US (occurrence: US)
  Receive Date: 20120916
  Receipt Date: 20120916
  Transmission Date: 20130627
  Serious: No
  Sender: FDA-Public Use
  Company Number: US-009507513-1209USA005879

PATIENT

DRUGS (2)
  1. SINGULAIR [Suspect]
     Dosage: 4 mg, UNK
     Route: 048
     Dates: start: 20120911
  2. FLOXIN (NORFLOXACIN) [Concomitant]
     Dosage: UNK
     Dates: start: 20120911

REACTIONS (1)
  - Tongue pruritus [Recovering/Resolving]
